FAERS Safety Report 17075588 (Version 1)
Quarter: 2019Q4

REPORT INFORMATION
  Report Type: Spontaneous
  Country: GB (occurrence: GB)
  Receive Date: 20191126
  Receipt Date: 20191126
  Transmission Date: 20200122
  Serious: Yes (Other)
  Sender: FDA-Public Use
  Company Number: GB-PFIZER INC-2019504444

PATIENT
  Age: 46 Year
  Sex: Female
  Weight: 94 kg

DRUGS (9)
  1. PARACETAMOL [Concomitant]
     Active Substance: ACETAMINOPHEN
     Dosage: 2 DF, UNK
     Dates: start: 20181120
  2. CODEINE PHOSPHATE [Concomitant]
     Active Substance: CODEINE PHOSPHATE
     Dosage: 1 DF, AS NEEDED(FOUR TIMES DAILY)
     Dates: start: 20181221, end: 20190128
  3. ISPAGHULA EXTRACT\PSYLLIUM [Concomitant]
     Active Substance: HERBALS\PLANTAGO OVATA SEED\PLANTAGO SEED
     Dosage: 1 DF, 1X/DAY
     Dates: start: 20181030
  4. GABAPENTIN. [Suspect]
     Active Substance: GABAPENTIN
     Dosage: 300 MG, UNK
     Dates: start: 20190128, end: 20190131
  5. COLECALCIFEROL [Concomitant]
     Active Substance: CHOLECALCIFEROL
     Dosage: 3 DF, WEEKLY(FOR 12 WEEKS)
     Dates: start: 20181219
  6. LACTULOSE. [Concomitant]
     Active Substance: LACTULOSE
     Dosage: 30 ML, DAILY
     Dates: start: 20181030
  7. OMEPRAZOLE. [Concomitant]
     Active Substance: OMEPRAZOLE
     Dosage: 1 DF, 1X/DAY(IN THE MORNING)
     Dates: start: 20181030
  8. NEFOPAM [Concomitant]
     Active Substance: NEFOPAM
     Dosage: 2 DF, UNK
     Dates: start: 20181116
  9. GLYCEROL [Concomitant]
     Active Substance: GLYCERIN
     Dosage: 1 DF, AS NEEDED
     Dates: start: 20181116

REACTIONS (3)
  - Vomiting [Unknown]
  - Syncope [Recovered/Resolved]
  - Malaise [Recovered/Resolved]

NARRATIVE: CASE EVENT DATE: 20190219
